FAERS Safety Report 7304970-3 (Version None)
Quarter: 2011Q1

REPORT INFORMATION
  Report Type: 
  Country: None (occurrence: None)
  Receive Date: 20110222
  Receipt Date: 20110216
  Transmission Date: 20110831
  Serious: Yes (Other)
  Sender: FDA-Public Use
  Company Number: US-BRISTOL-MYERS SQUIBB COMPANY-15554181

PATIENT
  Age: 57 Year
  Sex: Female

DRUGS (1)
  1. IFEX [Suspect]
     Indication: SARCOMA UTERUS
     Dosage: 1 DF=1 GRAM PER METER SQUARED,3RD LINE, 2ND CYCLE, DAY 3 OF THERAPY

REACTIONS (3)
  - HALLUCINATION [None]
  - MALAISE [None]
  - VERTIGO [None]
